FAERS Safety Report 4373552-8 (Version None)
Quarter: 2004Q1

REPORT INFORMATION
  Report Type: 
  Country: None (occurrence: None)
  Receive Date: 20040305
  Receipt Date: 20031105
  Transmission Date: 20041129
  Serious: Yes (Other)
  Sender: FDA-Public Use
  Company Number: 2003UW14603

PATIENT
  Age: 75 Year
  Sex: Female

DRUGS (3)
  1. CRESTOR [Suspect]
     Dates: start: 20031102
  2. NEXIUM [Concomitant]
  3. CALTRATE [Concomitant]

REACTIONS (1)
  - SOMNOLENCE [None]
